FAERS Safety Report 18275721 (Version 1)
Quarter: 2020Q3

REPORT INFORMATION
  Report Type: Report from Study
  Country: IT (occurrence: IT)
  Receive Date: 20200916
  Receipt Date: 20200916
  Transmission Date: 20201103
  Serious: Yes (Other)
  Sender: FDA-Public Use
  Company Number: IT-INCYTE CORPORATION-2018IN003463

PATIENT

DRUGS (15)
  1. JAKAVI [Suspect]
     Active Substance: RUXOLITINIB
     Dosage: 20 OT, QD
     Route: 048
     Dates: start: 20180419, end: 20180513
  2. JAKAVI [Suspect]
     Active Substance: RUXOLITINIB
     Dosage: 20 OT, QD
     Route: 048
     Dates: start: 20180614, end: 20180801
  3. JAKAVI [Suspect]
     Active Substance: RUXOLITINIB
     Dosage: 15 OT, QD
     Route: 048
     Dates: start: 20171220, end: 20171227
  4. JAKAVI [Suspect]
     Active Substance: RUXOLITINIB
     Dosage: 18 OT, QD
     Route: 048
     Dates: start: 20180401, end: 20180418
  5. JAKAVI [Suspect]
     Active Substance: RUXOLITINIB
     Dosage: 25 OT, QD
     Route: 048
     Dates: start: 20180514, end: 20180613
  6. JAKAVI [Suspect]
     Active Substance: RUXOLITINIB
     Dosage: 10 OT, QD
     Route: 048
     Dates: start: 20200428, end: 20200503
  7. JAKAVI [Suspect]
     Active Substance: RUXOLITINIB
     Dosage: 25 OT, QD
     Route: 048
     Dates: start: 20171123, end: 20171205
  8. JAKAVI [Suspect]
     Active Substance: RUXOLITINIB
     Dosage: 25 OT, QD
     Route: 048
     Dates: start: 20180802, end: 20181212
  9. JAKAVI [Suspect]
     Active Substance: RUXOLITINIB
     Dosage: 20 OT, QD
     Route: 048
     Dates: start: 20171206, end: 20171219
  10. JAKAVI [Suspect]
     Active Substance: RUXOLITINIB
     Indication: MYELOFIBROSIS
     Dosage: 40 OT, QD
     Route: 048
     Dates: start: 20171003, end: 20171025
  11. JAKAVI [Suspect]
     Active Substance: RUXOLITINIB
     Dosage: 20 OT, QD
     Route: 048
     Dates: start: 20181213, end: 20200416
  12. JAKAVI [Suspect]
     Active Substance: RUXOLITINIB
     Dosage: 15 OT, QD
     Route: 048
     Dates: start: 20180321, end: 20180331
  13. JAKAVI [Suspect]
     Active Substance: RUXOLITINIB
     Dosage: 20 OT, QD
     Route: 048
     Dates: start: 20200504
  14. JAKAVI [Suspect]
     Active Substance: RUXOLITINIB
     Dosage: 20 OT, QD
     Route: 048
     Dates: start: 20171026, end: 20171122
  15. JAKAVI [Suspect]
     Active Substance: RUXOLITINIB
     Dosage: 10 OT, QD
     Route: 048
     Dates: start: 20171228, end: 20180320

REACTIONS (6)
  - Leukocytosis [Unknown]
  - Ophthalmic herpes simplex [Recovered/Resolved]
  - White blood cell count decreased [Unknown]
  - Anaemia [Unknown]
  - Swelling face [Unknown]
  - Pyrexia [Unknown]

NARRATIVE: CASE EVENT DATE: 20171206
